FAERS Safety Report 18895678 (Version 3)
Quarter: 2021Q2

REPORT INFORMATION
  Report Type: Report from Study
  Country: None (occurrence: FR)
  Receive Date: 20210216
  Receipt Date: 20210405
  Transmission Date: 20210717
  Serious: Yes (Hospitalization, Other)
  Sender: FDA-Public Use
  Company Number: FR-ABBVIE-20K-056-3681684-00

PATIENT
  Age: 64 Year
  Sex: Male

DRUGS (4)
  1. DUODOPA [Suspect]
     Active Substance: CARBIDOPA\LEVODOPA
     Dosage: CONTINUOUS FLOW RATE (DURING THE DAY): 6.5 ML/H
     Route: 050
     Dates: start: 2021
  2. CICAPLAST [Concomitant]
     Indication: PRODUCT USED FOR UNKNOWN INDICATION
  3. DUODOPA [Suspect]
     Active Substance: CARBIDOPA\LEVODOPA
     Dosage: CONTINUOUS FLOW RATE (DURING THE DAY): 6.8 ML/H
     Route: 050
     Dates: start: 2021, end: 2021
  4. DUODOPA [Suspect]
     Active Substance: CARBIDOPA\LEVODOPA
     Indication: PARKINSON^S DISEASE
     Route: 050
     Dates: start: 201504, end: 2021

REACTIONS (18)
  - Device physical property issue [Recovered/Resolved]
  - Weight decreased [Not Recovered/Not Resolved]
  - Device occlusion [Recovered/Resolved]
  - Device dislocation [Recovered/Resolved]
  - Dizziness [Not Recovered/Not Resolved]
  - Stoma site erythema [Not Recovered/Not Resolved]
  - Stoma site pain [Not Recovered/Not Resolved]
  - Musculoskeletal stiffness [Unknown]
  - Stoma site discharge [Recovered/Resolved]
  - Hyperthermia [Recovering/Resolving]
  - Plasma cell myeloma [Unknown]
  - Medical device site infection [Unknown]
  - Nutritional supplementation [Not Recovered/Not Resolved]
  - Dyskinesia [Not Recovered/Not Resolved]
  - Procedural complication [Unknown]
  - Product administered at inappropriate site [Unknown]
  - Obstruction [Not Recovered/Not Resolved]
  - Vomiting [Not Recovered/Not Resolved]

NARRATIVE: CASE EVENT DATE: 202010
